FAERS Safety Report 6675731-3 (Version None)
Quarter: 2010Q2

REPORT INFORMATION
  Report Type: 
  Country: None (occurrence: None)
  Receive Date: 20100409
  Receipt Date: 20100402
  Transmission Date: 20101027
  Serious: Yes (Other)
  Sender: FDA-Public Use
  Company Number: US-AMGEN-KDL403564

PATIENT
  Sex: Female
  Weight: 88.5 kg

DRUGS (5)
  1. ENBREL [Suspect]
     Indication: RHEUMATOID ARTHRITIS
     Route: 058
     Dates: start: 20080801
  2. METHOTREXATE [Concomitant]
  3. FOLIC ACID [Concomitant]
  4. ACTONEL [Concomitant]
  5. PREDNISONE [Concomitant]

REACTIONS (8)
  - ASTHENIA [None]
  - DEPRESSED MOOD [None]
  - INJECTION SITE REACTION [None]
  - INSOMNIA [None]
  - MALAISE [None]
  - OEDEMA PERIPHERAL [None]
  - OROPHARYNGEAL PAIN [None]
  - URTICARIA [None]
